FAERS Safety Report 9701553 (Version 1)
Quarter: 2013Q4

REPORT INFORMATION
  Report Type: Spontaneous
  Country: SE (occurrence: SE)
  Receive Date: 20131121
  Receipt Date: 20131121
  Transmission Date: 20140711
  Serious: Yes (Hospitalization, Other)
  Sender: FDA-Public Use
  Company Number: SE-UCBSA-103632

PATIENT
  Age: 29 Year
  Sex: Male

DRUGS (2)
  1. METHYLPHENIDATE HYDROCHLORIDE [Suspect]
     Dosage: UNKNOWN
  2. CAFFEINE [Suspect]
     Dosage: 210 TABLETS, 100 MG EACH (TOTAL AMOUNT INGESTED 21 GRAMS)
     Route: 048

REACTIONS (7)
  - Suicide attempt [Recovered/Resolved]
  - Hypokalaemia [Unknown]
  - Hyperglycaemia [Unknown]
  - Leukocytosis [Unknown]
  - Lactic acidosis [Recovered/Resolved]
  - Sinus tachycardia [Unknown]
  - Vomiting [Unknown]
